FAERS Safety Report 26081484 (Version 1)
Quarter: 2025Q4

REPORT INFORMATION
  Report Type: Spontaneous
  Country: EU (occurrence: EU)
  Receive Date: 20251124
  Receipt Date: 20251124
  Transmission Date: 20260118
  Serious: Yes (Hospitalization, Other)
  Sender: ALKEM
  Company Number: EU-ALKEM LABORATORIES LIMITED-DE-ALKEM-2025-12217

PATIENT
  Age: 34 Year
  Sex: Male
  Weight: 65 kg

DRUGS (7)
  1. IBUPROFEN [Suspect]
     Active Substance: IBUPROFEN
     Indication: Product used for unknown indication
     Dosage: 4000 MILLIGRAMS, (TOTAL) (400 MG)
     Route: 048
     Dates: start: 20251029, end: 20251029
  2. IBUPROFEN [Suspect]
     Active Substance: IBUPROFEN
     Dosage: 8000 MILLIGRAMS, (TOTAL) (800 MG)
     Route: 048
     Dates: start: 20251029, end: 20251029
  3. TRAMADOL HYDROCHLORIDE AND ACETAMINOPHEN [Suspect]
     Active Substance: ACETAMINOPHEN\TRAMADOL HYDROCHLORIDE
     Indication: Product used for unknown indication
     Dosage: 10 DOSAGE FORM, TOTAL
     Route: 048
     Dates: start: 20251029, end: 20251029
  4. VENLAFAXINE [Suspect]
     Active Substance: VENLAFAXINE HYDROCHLORIDE
     Indication: Product used for unknown indication
     Dosage: 1050 MILLIGRAM, (TOTAL)
     Route: 048
     Dates: start: 20251029, end: 20251029
  5. ACETAMINOPHEN [Suspect]
     Active Substance: ACETAMINOPHEN
     Indication: Product used for unknown indication
     Dosage: 5000 MILLIGRAMS, (TOTAL) (500)
     Route: 048
     Dates: start: 20251029, end: 20251029
  6. MELOXICAM [Suspect]
     Active Substance: MELOXICAM
     Indication: Product used for unknown indication
     Dosage: 75 MILLIGRAMS, (TOTAL)
     Route: 048
     Dates: start: 20251029, end: 20251029
  7. SITAGLIPTIN [Suspect]
     Active Substance: SITAGLIPTIN
     Indication: Product used for unknown indication
     Dosage: 1500 MILLIGRAM, (TOTAL), (FILM-COATED TABLET)
     Route: 048
     Dates: start: 20251029, end: 20251029

REACTIONS (3)
  - Suicide attempt [Recovered/Resolved]
  - Tachycardia [Recovered/Resolved]
  - Intentional overdose [Recovered/Resolved]

NARRATIVE: CASE EVENT DATE: 20251029
